FAERS Safety Report 9388904 (Version 1)
Quarter: 2013Q3

REPORT INFORMATION
  Report Type: Report from Study
  Country: US (occurrence: US)
  Receive Date: 20130708
  Receipt Date: 20130708
  Transmission Date: 20140515
  Serious: Yes (Hospitalization, Other)
  Sender: FDA-Public Use
  Company Number: US-ABBOTT-13P-163-1114050-00

PATIENT
  Age: 69 Year
  Sex: Female
  Weight: 59.02 kg

DRUGS (17)
  1. CREON [Suspect]
     Indication: PANCREATIC DISORDER
     Dosage: 3 CAPSULES WITH MEALS, 2 CAPSULES WITH SNACKS
     Dates: start: 201205
  2. CREON [Suspect]
     Indication: PANCREATITIS ACUTE
  3. UNKNOWN ANESTHETIC [Suspect]
     Indication: COLONOSCOPY
     Dates: start: 2012, end: 2012
  4. ALPRAZOLAM [Concomitant]
     Indication: PRODUCT USED FOR UNKNOWN INDICATION
  5. ASPIRIN [Concomitant]
     Indication: PRODUCT USED FOR UNKNOWN INDICATION
  6. CELEXA [Concomitant]
     Indication: PRODUCT USED FOR UNKNOWN INDICATION
  7. CITRICAL D [Concomitant]
     Indication: PRODUCT USED FOR UNKNOWN INDICATION
  8. DILTIAZEM ER [Concomitant]
     Indication: PRODUCT USED FOR UNKNOWN INDICATION
  9. ERYTHROMYCIN [Concomitant]
     Indication: PRODUCT USED FOR UNKNOWN INDICATION
     Route: 047
  10. GABAPENTIN [Concomitant]
     Indication: PRODUCT USED FOR UNKNOWN INDICATION
  11. HYDROCODONE W/ACETAMINOPHEN [Concomitant]
     Indication: PRODUCT USED FOR UNKNOWN INDICATION
  12. MELOXICAM [Concomitant]
     Indication: PRODUCT USED FOR UNKNOWN INDICATION
  13. LOTEMAX [Concomitant]
     Indication: PRODUCT USED FOR UNKNOWN INDICATION
  14. METHOCARBAMOL [Concomitant]
     Indication: PRODUCT USED FOR UNKNOWN INDICATION
  15. RESTASIS [Concomitant]
     Indication: PRODUCT USED FOR UNKNOWN INDICATION
  16. ZANAFLEX [Concomitant]
     Indication: PRODUCT USED FOR UNKNOWN INDICATION
  17. VOLTAREN [Concomitant]
     Indication: PRODUCT USED FOR UNKNOWN INDICATION

REACTIONS (15)
  - Syncope [Unknown]
  - Heart rate increased [Unknown]
  - Basal cell carcinoma [Recovered/Resolved]
  - Blood pressure fluctuation [Not Recovered/Not Resolved]
  - Anaesthetic complication [Not Recovered/Not Resolved]
  - Cyst [Recovered/Resolved]
  - Blood pressure decreased [Recovered/Resolved]
  - Influenza [Recovered/Resolved]
  - Ligament rupture [Recovering/Resolving]
  - Tendon rupture [Recovering/Resolving]
  - Pain in extremity [Recovering/Resolving]
  - Sensory disturbance [Recovering/Resolving]
  - Pancreatic disorder [Recovered/Resolved]
  - Asthenia [Recovered/Resolved]
  - Solar lentigo [Not Recovered/Not Resolved]
